FAERS Safety Report 24211854 (Version 5)
Quarter: 2025Q1

REPORT INFORMATION
  Report Type: Spontaneous
  Country: US (occurrence: US)
  Receive Date: 20240814
  Receipt Date: 20250126
  Transmission Date: 20250409
  Serious: No
  Sender: BIOGEN
  Company Number: US-BIOGEN-2024BI01277873

PATIENT
  Age: 71 Year
  Sex: Male

DRUGS (1)
  1. QALSODY [Suspect]
     Active Substance: TOFERSEN
     Indication: Product used for unknown indication
     Route: 050

REACTIONS (7)
  - Inflammation [Recovered/Resolved]
  - Post lumbar puncture syndrome [Unknown]
  - Weight decreased [Unknown]
  - Pancreatic cyst [Unknown]
  - Back pain [Unknown]
  - Nasopharyngitis [Unknown]
  - Aphonia [Unknown]

NARRATIVE: CASE EVENT DATE: 20240801
